FAERS Safety Report 5627121-X (Version None)
Quarter: 2008Q1

REPORT INFORMATION
  Report Type: 
  Country: None (occurrence: None)
  Receive Date: 20080212
  Receipt Date: 20080212
  Transmission Date: 20080703
  Serious: Yes (Death)
  Sender: FDA-Public Use
  Company Number: None

PATIENT
  Age: 55 Year
  Sex: Male
  Weight: 77.1115 kg

DRUGS (1)
  1. CHANTIX [Suspect]
     Dates: start: 20070117, end: 20071017

REACTIONS (1)
  - COMPLETED SUICIDE [None]
